FAERS Safety Report 13395257 (Version 1)
Quarter: 2017Q1

REPORT INFORMATION
  Report Type: Spontaneous
  Country: US (occurrence: US)
  Receive Date: 20170331
  Receipt Date: 20170331
  Transmission Date: 20170429
  Serious: Yes (Disabling)
  Sender: FDA-Public Use
  Company Number: None

PATIENT
  Age: 56 Year
  Sex: Female
  Weight: 54 kg

DRUGS (8)
  1. NEURONTIN [Concomitant]
     Active Substance: GABAPENTIN
  2. COQ10 [Concomitant]
     Active Substance: UBIDECARENONE
  3. BIOTIN [Concomitant]
     Active Substance: BIOTIN
  4. LOW DOSE NALTREXONE [Concomitant]
     Active Substance: NALTREXONE
  5. VITAMIN A [Concomitant]
     Active Substance: VITAMIN A
  6. CIPRO [Suspect]
     Active Substance: CIPROFLOXACIN HYDROCHLORIDE
     Indication: PROPHYLAXIS URINARY TRACT INFECTION
     Dosage: ?          QUANTITY:1 TABLET(S);OTHER FREQUENCY:VARIOUS;?
     Route: 048
  7. VITAMIN D [Concomitant]
     Active Substance: CHOLECALCIFEROL
  8. OXYBUTININ [Concomitant]
     Active Substance: OXYBUTYNIN

REACTIONS (7)
  - Meniscus injury [None]
  - Neuropathy peripheral [None]
  - Tinnitus [None]
  - Spinal osteoarthritis [None]
  - Retinal tear [None]
  - Muscular weakness [None]
  - Rotator cuff syndrome [None]
